FAERS Safety Report 17338741 (Version 1)
Quarter: 2020Q1

REPORT INFORMATION
  Report Type: Spontaneous
  Country: US (occurrence: US)
  Receive Date: 20200129
  Receipt Date: 20200129
  Transmission Date: 20200409
  Serious: No
  Sender: FDA-Public Use
  Company Number: US-ALLERGAN-1913372US

PATIENT
  Sex: Male

DRUGS (3)
  1. MELOXICAM. [Concomitant]
     Active Substance: MELOXICAM
     Indication: BACK PAIN
     Dosage: UNK
  2. PRED FORTE [Suspect]
     Active Substance: PREDNISOLONE ACETATE
     Indication: EYE INFLAMMATION
     Dosage: 1 GTT, QID
     Route: 047
     Dates: start: 20190308, end: 20190318
  3. TYLENOL [Concomitant]
     Active Substance: ACETAMINOPHEN
     Indication: BACK PAIN
     Dosage: UNK

REACTIONS (5)
  - Nausea [Recovering/Resolving]
  - Diarrhoea [Recovering/Resolving]
  - Taste disorder [Not Recovered/Not Resolved]
  - Abdominal pain [Recovering/Resolving]
  - Abdominal pain upper [Recovering/Resolving]

NARRATIVE: CASE EVENT DATE: 20190308
